FAERS Safety Report 10239143 (Version 1)
Quarter: 2014Q2

REPORT INFORMATION
  Report Type: Spontaneous
  Country: US (occurrence: US)
  Receive Date: 20140616
  Receipt Date: 20140616
  Transmission Date: 20141212
  Serious: No
  Sender: FDA-Public Use
  Company Number: US-ENDO PHARMACEUTICALS INC.-OPGN20140001

PATIENT
  Sex: Male

DRUGS (1)
  1. OXYMORPHONE HYDROCHLORIDE [Suspect]
     Indication: PAIN
     Route: 048
     Dates: start: 201312

REACTIONS (1)
  - Blood glucose increased [Not Recovered/Not Resolved]
